FAERS Safety Report 23718967 (Version 2)
Quarter: 2024Q2

REPORT INFORMATION
  Report Type: Spontaneous
  Country: FR (occurrence: FR)
  Receive Date: 20240408
  Receipt Date: 20240510
  Transmission Date: 20240716
  Serious: Yes (Other)
  Sender: FDA-Public Use
  Company Number: FR-PFIZER INC-PV202400045285

PATIENT

DRUGS (4)
  1. OXBRYTA [Suspect]
     Active Substance: VOXELOTOR
     Indication: Haemolytic anaemia
     Dosage: 500 MG, DAILY
     Route: 048
     Dates: start: 20240125
  2. OXBRYTA [Suspect]
     Active Substance: VOXELOTOR
     Dosage: 1000 MG, DAILY
     Route: 048
  3. SIKLOS [Suspect]
     Active Substance: HYDROXYUREA
     Dosage: 1250 MG, DAILY
  4. SIKLOS [Suspect]
     Active Substance: HYDROXYUREA
     Dosage: 1000 MG, DAILY
     Dates: start: 20240220

REACTIONS (4)
  - Thrombocytopenia [Unknown]
  - Pain [Unknown]
  - Dyspnoea [Unknown]
  - Fatigue [Unknown]
